FAERS Safety Report 6357378-1 (Version None)
Quarter: 2009Q3

REPORT INFORMATION
  Report Type: 
  Country: None (occurrence: None)
  Receive Date: 20090916
  Receipt Date: 20090907
  Transmission Date: 20100115
  Serious: Yes (Hospitalization)
  Sender: FDA-Public Use
  Company Number: US-BAYER-200930785NA

PATIENT
  Age: 39 Year
  Sex: Female

DRUGS (9)
  1. BETASERON [Suspect]
     Indication: MULTIPLE SCLEROSIS
     Dates: start: 20060401, end: 20080301
  2. AVONEX [Concomitant]
     Indication: MULTIPLE SCLEROSIS
     Dosage: TOTAL DAILY DOSE: 30 ?G
     Route: 030
     Dates: start: 20080327
  3. AVONEX [Concomitant]
     Dosage: TOTAL DAILY DOSE: 30 ?G
     Route: 030
     Dates: start: 20020517, end: 20041101
  4. LORTAB [Concomitant]
     Indication: MIGRAINE
  5. TOPAMAX [Concomitant]
     Indication: MIGRAINE
  6. FLEXERIL [Concomitant]
     Indication: MIGRAINE
  7. HYDROCHLOROTHIAZIDE [Concomitant]
     Indication: HYPERTENSION
     Dosage: TOTAL DAILY DOSE: 25 MG
  8. HYDROCHLOROTHIAZIDE [Concomitant]
     Dosage: TOTAL DAILY DOSE: 37.5 MG
  9. HYDROCHLOROTHIAZIDE [Concomitant]
     Dosage: TOTAL DAILY DOSE: 25 MG

REACTIONS (3)
  - BLOOD PRESSURE INCREASED [None]
  - HEADACHE [None]
  - MIGRAINE [None]
